FAERS Safety Report 9833422 (Version 1)
Quarter: 2014Q1

REPORT INFORMATION
  Report Type: Spontaneous
  Country: US (occurrence: US)
  Receive Date: 20140121
  Receipt Date: 20140121
  Transmission Date: 20141002
  Serious: Yes (Other)
  Sender: FDA-Public Use
  Company Number: US-MYLANLABS-2014S1000900

PATIENT
  Age: 46 Year
  Sex: Female

DRUGS (5)
  1. FENTANYL TRANSDERMAL SYSTEM [Suspect]
     Indication: PAIN
     Dosage: Q 72H
     Route: 062
     Dates: start: 20131231, end: 20140106
  2. PROZAC [Concomitant]
  3. KLONOPIN [Concomitant]
  4. ASACOL [Concomitant]
  5. ENTOCORT [Concomitant]

REACTIONS (5)
  - Drug ineffective [Recovered/Resolved]
  - Pain [Recovered/Resolved]
  - Drug withdrawal syndrome [Recovered/Resolved]
  - Insomnia [Recovered/Resolved]
  - Pyrexia [Recovered/Resolved]
